FAERS Safety Report 9754515 (Version 3)
Quarter: 2014Q1

REPORT INFORMATION
  Report Type: Spontaneous
  Country: US (occurrence: US)
  Receive Date: 20131213
  Receipt Date: 20140120
  Transmission Date: 20141002
  Serious: No
  Sender: FDA-Public Use
  Company Number: US-GILEAD-2013-0089752

PATIENT
  Age: 29 Year
  Sex: Female
  Weight: 58.5 kg

DRUGS (5)
  1. STRIBILD [Suspect]
     Indication: PRODUCT USED FOR UNKNOWN INDICATION
     Dosage: UNK
     Route: 048
     Dates: start: 201311
  2. PRENATAL VITAMINS                  /07499601/ [Concomitant]
     Indication: SUPPLEMENTATION THERAPY
  3. COCAINE [Concomitant]
  4. LORTAB                             /00607101/ [Concomitant]
  5. VALIUM [Concomitant]
     Dosage: UNK

REACTIONS (2)
  - Lip swelling [Unknown]
  - Nasal oedema [Unknown]
